FAERS Safety Report 21933313 (Version 4)
Quarter: 2023Q2

REPORT INFORMATION
  Report Type: Spontaneous
  Country: BR (occurrence: BR)
  Receive Date: 20230131
  Receipt Date: 20230503
  Transmission Date: 20230721
  Serious: Yes (Hospitalization, Other)
  Sender: FDA-Public Use
  Company Number: BR-BoehringerIngelheim-2023-BI-214381

PATIENT
  Age: 42 Year
  Sex: Female
  Weight: 63 kg

DRUGS (4)
  1. ATROVENT [Suspect]
     Active Substance: IPRATROPIUM BROMIDE
     Indication: Product used for unknown indication
  2. BEROTEC [Suspect]
     Active Substance: FENOTEROL HYDROBROMIDE
     Indication: Asthma
     Dosage: BEROTEC IN DROPS
     Route: 055
     Dates: start: 2003
  3. BEROTEC [Suspect]
     Active Substance: FENOTEROL HYDROBROMIDE
     Dosage: BEROTEC AEROSOL 5 PUFFS IN THE EVENING WHEN NEEDED.
     Route: 055
     Dates: start: 2020
  4. OMEPRAZOLE [Concomitant]
     Active Substance: OMEPRAZOLE
     Indication: Gastritis
     Route: 048

REACTIONS (18)
  - Respiratory arrest [Unknown]
  - Keratoconus [Unknown]
  - Astigmatism [Unknown]
  - Product taste abnormal [Unknown]
  - Fatigue [Unknown]
  - Secretion discharge [Unknown]
  - Oral pain [Unknown]
  - Visual impairment [Unknown]
  - Smoke sensitivity [Unknown]
  - Hypersensitivity [Unknown]
  - Allergy to animal [Unknown]
  - Mycotic allergy [Unknown]
  - Dust allergy [Unknown]
  - Parosmia [Unknown]
  - Throat clearing [Unknown]
  - Labyrinthitis [Unknown]
  - Glossodynia [Unknown]
  - Device defective [Unknown]

NARRATIVE: CASE EVENT DATE: 20220501
